FAERS Safety Report 19683304 (Version 2)
Quarter: 2021Q3

REPORT INFORMATION
  Report Type: Spontaneous
  Country: JP (occurrence: JP)
  Receive Date: 20210811
  Receipt Date: 20210906
  Transmission Date: 20211014
  Serious: Yes (Hospitalization, Other)
  Sender: FDA-Public Use
  Company Number: JP-ROCHE-2733637

PATIENT
  Age: 54 Year
  Sex: Female
  Weight: 47.1 kg

DRUGS (9)
  1. AVASTIN [Suspect]
     Active Substance: BEVACIZUMAB
     Indication: COLON CANCER
     Route: 041
     Dates: start: 20170418, end: 20210108
  2. ALOXI [Concomitant]
     Active Substance: PALONOSETRON HYDROCHLORIDE
     Route: 065
  3. 5?FU [FLUOROURACIL] [Concomitant]
     Active Substance: FLUOROURACIL
     Indication: RECTAL CANCER
     Dosage: 600 MILLIGRAM, ONCE/2WEEKS
     Route: 041
     Dates: start: 20170321, end: 20210108
  4. AZUNOL [SODIUM GUALENATE] [Concomitant]
     Active Substance: SODIUM GUALENATE
     Route: 065
  5. 5?FU [FLUOROURACIL] [Concomitant]
     Active Substance: FLUOROURACIL
     Dosage: 3600 MILLIGRAM
     Route: 040
     Dates: start: 20170321, end: 20210108
  6. TOPOTECIN [Concomitant]
     Active Substance: IRINOTECAN HYDROCHLORIDE
     Indication: RECTAL CANCER
     Dosage: 230 MILLIGRAM, ONCE/2WEEKS
     Route: 041
     Dates: start: 20170321, end: 20210108
  7. GASTROGRAFIN [Concomitant]
     Active Substance: DIATRIZOATE MEGLUMINE\DIATRIZOATE SODIUM
     Route: 065
  8. KYTRIL [Concomitant]
     Active Substance: GRANISETRON HYDROCHLORIDE
     Route: 065
  9. ISOVORIN [Concomitant]
     Active Substance: LEUCOVORIN CALCIUM
     Indication: RECTAL CANCER
     Dosage: 300 MILLIGRAM, ONCE/2WEEKS
     Route: 041
     Dates: start: 20170321, end: 20210108

REACTIONS (10)
  - Vulvovaginal pain [Unknown]
  - Fistula of small intestine [Recovered/Resolved]
  - Induration [Unknown]
  - Vaginal fistula [Unknown]
  - Pelvic cyst [Unknown]
  - Jugular vein thrombosis [Recovering/Resolving]
  - Anorectal discomfort [Unknown]
  - Nausea [Unknown]
  - Subclavian vein thrombosis [Recovering/Resolving]
  - Vena cava thrombosis [Unknown]

NARRATIVE: CASE EVENT DATE: 20190514
